FAERS Safety Report 17704518 (Version 1)
Quarter: 2020Q2

REPORT INFORMATION
  Report Type: Spontaneous
  Country: US (occurrence: US)
  Receive Date: 20200424
  Receipt Date: 20200424
  Transmission Date: 20200714
  Serious: Yes (Other)
  Sender: FDA-Public Use
  Company Number: None

PATIENT
  Age: 80 Year
  Sex: Female
  Weight: 81 kg

DRUGS (6)
  1. VITAMIN C [Concomitant]
     Active Substance: ASCORBIC ACID
  2. THYROID MEDICATION [Concomitant]
     Active Substance: UNSPECIFIED INGREDIENT
  3. VITAMIN D [Concomitant]
     Active Substance: VITAMIN D NOS
  4. CHORIONIC GONADOTROPHIN [Suspect]
     Active Substance: CHORIOGONADOTROPIN ALFA
     Indication: WEIGHT DECREASED
     Dosage: ?          QUANTITY:150 INJECTION(S);?
     Route: 058
     Dates: start: 20200421
  5. PRAVASTATIN. [Concomitant]
     Active Substance: PRAVASTATIN
  6. METOPROLOL. [Concomitant]
     Active Substance: METOPROLOL

REACTIONS (2)
  - Product use in unapproved indication [None]
  - Dizziness [None]

NARRATIVE: CASE EVENT DATE: 20200423
